FAERS Safety Report 8717808 (Version 3)
Quarter: 2015Q1

REPORT INFORMATION
  Report Type: Report from Study
  Country: US (occurrence: US)
  Receive Date: 20120810
  Receipt Date: 20150201
  Transmission Date: 20150721
  Serious: Yes (Death)
  Sender: FDA-Public Use
  Company Number: US-ROCHE-1097874

PATIENT
  Sex: Male
  Weight: 50 kg

DRUGS (3)
  1. ACTIVASE [Suspect]
     Active Substance: ALTEPLASE
     Indication: CEREBROVASCULAR ACCIDENT
     Route: 034
     Dates: start: 20091026
  2. ACTIVASE [Suspect]
     Active Substance: ALTEPLASE
     Indication: PULMONARY INFARCTION
     Route: 034
     Dates: start: 20091027
  3. ACTIVASE [Suspect]
     Active Substance: ALTEPLASE
     Indication: PULMONARY EMBOLISM
     Route: 034

REACTIONS (3)
  - Endocarditis [Fatal]
  - Staphylococcal bacteraemia [Fatal]
  - HIV test positive [Fatal]
